FAERS Safety Report 7322085-5 (Version None)
Quarter: 2011Q1

REPORT INFORMATION
  Report Type: 
  Country: None (occurrence: None)
  Receive Date: 20110228
  Receipt Date: 20110223
  Transmission Date: 20110831
  Serious: Yes (Other)
  Sender: FDA-Public Use
  Company Number: FR-GILEAD-2011-0036077

PATIENT
  Sex: Male
  Weight: 2.435 kg

DRUGS (2)
  1. VIREAD [Suspect]
     Indication: HIV INFECTION
     Route: 064
     Dates: start: 20050831
  2. AZT [Concomitant]
     Indication: PROPHYLAXIS AGAINST HIV INFECTION

REACTIONS (2)
  - FOETAL ARRHYTHMIA [None]
  - GAMMA-GLUTAMYLTRANSFERASE INCREASED [None]
